FAERS Safety Report 16957526 (Version 1)
Quarter: 2019Q4

REPORT INFORMATION
  Report Type: Spontaneous
  Country: US (occurrence: US)
  Receive Date: 20191024
  Receipt Date: 20191024
  Transmission Date: 20200122
  Serious: Yes (Death)
  Sender: FDA-Public Use
  Company Number: US-PFIZER INC-2016040386

PATIENT
  Age: 91 Year
  Sex: Female

DRUGS (29)
  1. HYDROCORTISONE. [Concomitant]
     Active Substance: HYDROCORTISONE
     Dosage: UNK UNK, 3X/DAY, [TO AFFECTED AREAS THREE TIMES A DAY]
     Dates: start: 20141201
  2. TRIAMCINOLONE ACETONIDE. [Concomitant]
     Active Substance: TRIAMCINOLONE ACETONIDE
     Indication: RASH
     Dosage: UNK UNK, 2X/DAY, [1 OINTMENT (EXTERNAL) TWO TIMES]
     Dates: start: 20150904
  3. COLACE [Concomitant]
     Active Substance: DOCUSATE SODIUM
     Dosage: 100 MG, DAILY
     Route: 048
     Dates: start: 20150710
  4. METROGEL [Concomitant]
     Active Substance: METRONIDAZOLE
     Dosage: UNK, DAILY [TO AFFECTED AREAS ON FACE/1 (ONE) GEL (EXTERNAL) DAILY]
     Dates: start: 20150407
  5. TOVIAZ [Suspect]
     Active Substance: FESOTERODINE FUMARATE
     Indication: STRESS URINARY INCONTINENCE
     Dosage: 4 MG, DAILY [1 TABLET ER 24HR DAILY]
     Route: 048
     Dates: start: 20151221
  6. ZOLOFT [Concomitant]
     Active Substance: SERTRALINE HYDROCHLORIDE
     Dosage: 50 MG, DAILY
     Route: 048
     Dates: start: 20140819
  7. VENTOLIN HFA [Concomitant]
     Active Substance: ALBUTEROL SULFATE
     Indication: WHEEZING
  8. VITAMIN D [COLECALCIFEROL] [Concomitant]
     Active Substance: CHOLECALCIFEROL
     Dosage: 1000 IU, DAILY
     Route: 048
     Dates: start: 20130723
  9. CEVIMELINE HCL [Concomitant]
     Active Substance: CEVIMELINE HYDROCHLORIDE
     Dosage: 30 MG, DAILY
     Route: 048
     Dates: start: 20140623
  10. MUCINEX [Concomitant]
     Active Substance: GUAIFENESIN
     Dosage: 600 MG, 2X/DAY
     Route: 048
     Dates: start: 20140528
  11. OMEGA 3 [FISH OIL] [Concomitant]
     Active Substance: FISH OIL
     Dosage: 1200 MG, DAILY
     Route: 048
     Dates: start: 20150304
  12. OCUVITE [ASCORBIC ACID;RETINOL;TOCOPHEROL] [Concomitant]
     Dosage: UNK UNK, DAILY [1 (ORAL) DAILY]
     Route: 048
  13. BENZONATATE. [Concomitant]
     Active Substance: BENZONATATE
     Indication: COUGH
     Dosage: 200 MG, AS NEEDED, [1 CAPSULE (ORAL) THREE TIMES DAILY]
     Route: 048
     Dates: start: 20130109
  14. CLONAZEPAM. [Concomitant]
     Active Substance: CLONAZEPAM
     Dosage: 1 MG, 1X/DAY, [1 (ONE) TABLET (ORAL) AT BEDTIME]
     Route: 048
     Dates: start: 20150904
  15. CRANBERRY. [Concomitant]
     Active Substance: CRANBERRY
     Dosage: 125 MG, DAILY
     Route: 048
     Dates: start: 20150304
  16. DONEPEZIL HCL [Concomitant]
     Active Substance: DONEPEZIL HYDROCHLORIDE
     Dosage: 10 MG, 1X/DAY
     Route: 048
     Dates: start: 20150304
  17. STOOL SOFTENER (DOCUSATE) [Concomitant]
     Active Substance: DOCUSATE
     Dosage: 1 DF, DAILY
     Route: 048
  18. TOVIAZ [Suspect]
     Active Substance: FESOTERODINE FUMARATE
     Dosage: 4 MG, DAILY [1 TABLET ER 24 HR DAILY]
     Route: 048
     Dates: start: 20190318
  19. VENTOLIN HFA [Concomitant]
     Active Substance: ALBUTEROL SULFATE
     Indication: COUGH
  20. MIRALAX [Concomitant]
     Active Substance: POLYETHYLENE GLYCOL 3350
     Dosage: UNK UNK, AS NEEDED
     Route: 048
     Dates: start: 20151002
  21. PLAVIX [Concomitant]
     Active Substance: CLOPIDOGREL BISULFATE
     Dosage: 75 MG, DAILY
     Route: 048
     Dates: start: 20150921
  22. VENTOLIN HFA [Concomitant]
     Active Substance: ALBUTEROL SULFATE
     Indication: BRONCHOSPASM
     Dosage: AS NEEDED [2 (TWO) PUFF(S) (INHALATION) EVERY 4 HOURS AS NEEDED]
     Route: 055
     Dates: start: 20120307
  23. TYLENOL EXTRA STRENGTH [Concomitant]
     Active Substance: ACETAMINOPHEN
     Dosage: 1000 MG, AS NEEDED [2 (TWO) TABLET (ORAL) THREE TIMES DAILY]
     Route: 048
     Dates: start: 20100317
  24. FOLIC ACID. [Concomitant]
     Active Substance: FOLIC ACID
     Dosage: 800 UG, DAILY
     Route: 048
     Dates: start: 20150710
  25. PROTONIX [OMEPRAZOLE] [Concomitant]
     Active Substance: OMEPRAZOLE
     Dosage: 40 MG, DAILY, [1 TABLET DR (ORAL) DAILY]
     Route: 048
     Dates: start: 20150105
  26. HYDROCODONE/ACETAMINOPHEN [Concomitant]
     Active Substance: ACETAMINOPHEN\HYDROCODONE
     Indication: PAIN
     Dosage: UNK UNK, AS NEEDED [1/2 - 1 TABLET (ORAL) EVERY 6 HOURS, AS NEEDED]
     Route: 048
     Dates: start: 20151002
  27. FERROUS SULFATE. [Concomitant]
     Active Substance: FERROUS SULFATE
     Indication: IRON DEFICIENCY ANAEMIA
     Dosage: 1 DF, 2X/DAY
     Dates: start: 20151009
  28. LIPITOR [Concomitant]
     Active Substance: ATORVASTATIN CALCIUM
     Dosage: 20 MG, DAILY
     Route: 048
     Dates: start: 20141121
  29. FOLBIC [Concomitant]
     Active Substance: CYANOCOBALAMIN\FOLIC ACID\PYRIDOXINE
     Dosage: 1 DF, DAILY
     Route: 048
     Dates: start: 20151013

REACTIONS (1)
  - Death [Fatal]

NARRATIVE: CASE EVENT DATE: 20191020
